FAERS Safety Report 21357766 (Version 1)
Quarter: 2022Q3

REPORT INFORMATION
  Report Type: Report from Study
  Country: DE (occurrence: DE)
  Receive Date: 20220921
  Receipt Date: 20220921
  Transmission Date: 20221026
  Serious: Yes (Other)
  Sender: FDA-Public Use
  Company Number: None

PATIENT
  Sex: Female

DRUGS (29)
  1. ENBREL [Suspect]
     Active Substance: ETANERCEPT
     Indication: Rheumatoid arthritis
     Dosage: 50 MG, UNIT DOSE : 50 MG, DURATION : 1 YEAR
     Route: 065
     Dates: start: 201403, end: 201509
  2. HYDROXYCHLOROQUINE [Suspect]
     Active Substance: HYDROXYCHLOROQUINE
     Indication: Rheumatoid arthritis
     Dosage: 200 MG, UNIT DOSE : 200 MG, THERAPY END DATE : ASKU
     Route: 065
     Dates: start: 20170830
  3. HYDROXYCHLOROQUINE [Suspect]
     Active Substance: HYDROXYCHLOROQUINE
     Dosage: THERAPY END DATE : ASKU
     Route: 065
     Dates: start: 20180405
  4. HYDROXYCHLOROQUINE [Suspect]
     Active Substance: HYDROXYCHLOROQUINE
     Dosage: 200 MG, UNIT DOSE : 200 MG, THERAPY END DATE : ASKU
     Route: 065
     Dates: start: 20170426
  5. HYDROXYCHLOROQUINE [Suspect]
     Active Substance: HYDROXYCHLOROQUINE
     Dosage: UNK, THERAPY END DATE : ASKU
     Route: 065
     Dates: start: 20161109
  6. HYDROXYCHLOROQUINE [Suspect]
     Active Substance: HYDROXYCHLOROQUINE
     Dosage: 200 MG, UNIT DOSE : 200 MG, THERAPY END DATE : ASKU
     Route: 065
     Dates: start: 20140324
  7. HYDROXYCHLOROQUINE [Suspect]
     Active Substance: HYDROXYCHLOROQUINE
     Dosage: 300 MG, UNIT DOSE : 300 MG, THERAPY END DATE : ASKU
     Route: 065
     Dates: start: 20181205
  8. HYDROXYCHLOROQUINE [Suspect]
     Active Substance: HYDROXYCHLOROQUINE
     Dosage: UNK , THERAPY END DATE : ASKU
     Route: 065
     Dates: start: 20141218
  9. HYDROXYCHLOROQUINE [Suspect]
     Active Substance: HYDROXYCHLOROQUINE
     Dosage: 200 MG, UNIT DOSE : 200 MG, THERAPY END DATE : ASKU
     Route: 065
     Dates: start: 20160216
  10. ORENCIA [Suspect]
     Active Substance: ABATACEPT
     Indication: Rheumatoid arthritis
     Dosage: 125 MG, UNIT DOSE : 125 MG, DURATION : 5 MONTHS
     Route: 065
     Dates: start: 201910, end: 202003
  11. METHOTREXATE [Suspect]
     Active Substance: METHOTREXATE
     Indication: Rheumatoid arthritis
     Dosage: 17.5 MG, UNIT DOSE :   17.5 MG, THERAPY END DATE : ASKU
     Route: 065
     Dates: start: 20170830
  12. METHOTREXATE [Suspect]
     Active Substance: METHOTREXATE
     Dosage: 17.5 MG , UNIT DOSE :   17.5 MG, THERAPY END DATE : ASKU
     Route: 065
     Dates: start: 20191021
  13. METHOTREXATE [Suspect]
     Active Substance: METHOTREXATE
     Dosage: 17.5 MG, UNIT DOSE :   17.5 MG, THERAPY END DATE : ASKU
     Route: 065
     Dates: start: 20200303
  14. METHOTREXATE [Suspect]
     Active Substance: METHOTREXATE
     Dosage: 20 MG,UNIT DOSE :   20 MG, THERAPY END DATE : ASKU
     Route: 065
     Dates: start: 20181205
  15. METHOTREXATE [Suspect]
     Active Substance: METHOTREXATE
     Dosage: 15 MG, UNIT DOSE : 15  MG, THERAPY END DATE : ASKU
     Route: 065
     Dates: start: 20141218
  16. METHOTREXATE [Suspect]
     Active Substance: METHOTREXATE
     Dosage: 20 MG, UNIT DOSE : 20 MG, THERAPY END DATE : ASKU
     Route: 065
     Dates: start: 20210531
  17. METHOTREXATE [Suspect]
     Active Substance: METHOTREXATE
     Dosage: 20 MG, UNIT DOSE : 20 MG, THERAPY END DATE : ASKU
     Route: 065
     Dates: start: 20180405
  18. METHOTREXATE [Suspect]
     Active Substance: METHOTREXATE
     Dosage: 17.5 MG, UNIT DOSE : 17.5 MG, THERAPY END DATE : ASKU
     Route: 065
     Dates: start: 20161109
  19. METHOTREXATE [Suspect]
     Active Substance: METHOTREXATE
     Dosage: 17.5 MG, UNIT DOSE : 17.5 MG, THERAPY END DATE : ASKU
     Route: 065
     Dates: start: 20160216
  20. METHOTREXATE [Suspect]
     Active Substance: METHOTREXATE
     Dosage: 15 MG , UNIT DOSE : 15 MG, THERAPY END DATE : ASKU
     Route: 065
     Dates: start: 20140324
  21. METHOTREXATE [Suspect]
     Active Substance: METHOTREXATE
     Dosage: 17.5 MG, UNIT DOSE : 17.5 MG, THERAPY END DATE : ASKU
     Route: 065
     Dates: start: 20170426
  22. METHOTREXATE [Suspect]
     Active Substance: METHOTREXATE
     Dosage: 17.5 MG, UNIT DOSE : 17.5 MG, THERAPY END DATE : ASKU
     Route: 065
     Dates: start: 20151019
  23. METHOTREXATE [Suspect]
     Active Substance: METHOTREXATE
     Dosage: 20 MG, UNIT DOSE : 20 MG, THERAPY END DATE : ASKU
     Route: 065
     Dates: start: 20190613
  24. METHOTREXATE [Suspect]
     Active Substance: METHOTREXATE
     Dosage: 17.5 MG, UNIT DOSE : 17.5 MG, THERAPY END DATE : ASKU
     Route: 065
     Dates: start: 20220118
  25. METHOTREXATE [Suspect]
     Active Substance: METHOTREXATE
     Dosage: 17.5 MG, UNIT DOSE : 17.5 MG, THERAPY END DATE : ASKU
     Route: 065
     Dates: start: 20150505
  26. ETANERCEPT [Suspect]
     Active Substance: ETANERCEPT
     Indication: Rheumatoid arthritis
     Dosage: 50 MG,  UNIT DOSE :   50 MG,   DURATION : 5 MONTHS
     Route: 065
     Dates: start: 201606, end: 201611
  27. ETANERCEPT [Suspect]
     Active Substance: ETANERCEPT
     Dosage: 50 MG , UNIT DOSE :   50 MG,   DURATION : 1 MONTHS
     Route: 065
     Dates: start: 202010, end: 202011
  28. ETANERCEPT [Suspect]
     Active Substance: ETANERCEPT
     Dosage: 50 MG, UNIT DOSE :   50 MG,   DURATION : 1 YEARS
     Route: 065
     Dates: start: 201709, end: 201908
  29. TOCILIZUMAB [Suspect]
     Active Substance: TOCILIZUMAB
     Indication: Rheumatoid arthritis
     Dosage: 162 MG, UNIT DOSE : 162 MG, DURATION : 4 MONTHS
     Route: 065
     Dates: start: 201510, end: 201602

REACTIONS (4)
  - Osteoarthritis [Recovered/Resolved]
  - Herpes zoster [Unknown]
  - Back pain [Unknown]
  - Gastrooesophageal reflux disease [Unknown]

NARRATIVE: CASE EVENT DATE: 20170315
